FAERS Safety Report 14232922 (Version 1)
Quarter: 2017Q4

REPORT INFORMATION
  Report Type: Spontaneous
  Country: US (occurrence: US)
  Receive Date: 20171128
  Receipt Date: 20171128
  Transmission Date: 20180321
  Serious: No
  Sender: FDA-Public Use
  Company Number: US-LEADIANT BIOSCIENCES INC-2017STPI000012

PATIENT

DRUGS (6)
  1. VINCRISTINE [Concomitant]
     Active Substance: VINCRISTINE
  2. FIORICET [Concomitant]
     Active Substance: ACETAMINOPHEN\BUTALBITAL\CAFFEINE
  3. MULTI VITAMIN [Concomitant]
     Active Substance: VITAMINS
  4. LOMUSTINE. [Concomitant]
     Active Substance: LOMUSTINE
  5. KEPPRA [Concomitant]
     Active Substance: LEVETIRACETAM
  6. MATULANE [Suspect]
     Active Substance: PROCARBAZINE HYDROCHLORIDE
     Indication: BRAIN NEOPLASM MALIGNANT
     Dosage: 150 MG, QD
     Route: 048
     Dates: start: 21060520

REACTIONS (1)
  - Decreased appetite [Unknown]
